FAERS Safety Report 16081065 (Version 1)
Quarter: 2019Q1

REPORT INFORMATION
  Report Type: Spontaneous
  Country: FI (occurrence: FI)
  Receive Date: 20190316
  Receipt Date: 20190316
  Transmission Date: 20190418
  Serious: Yes (Life-Threatening)
  Sender: FDA-Public Use
  Company Number: FI-TEVA-2019-FI-1023506

PATIENT
  Age: 80 Year
  Sex: Male

DRUGS (3)
  1. OMEPRAZOL RATIOPHARM [Suspect]
     Active Substance: OMEPRAZOLE
     Indication: GASTROOESOPHAGEAL REFLUX DISEASE
     Dosage: 20,MG,DAILY
     Dates: start: 20170815, end: 20181010
  2. THYROXIN [Concomitant]
     Active Substance: LEVOTHYROXINE
     Indication: THYROID HORMONES DECREASED
     Dosage: 100,?G,DAILY
     Dates: start: 2009
  3. PRIMASPAN [Concomitant]
     Active Substance: ASPIRIN
     Indication: ANTICOAGULANT THERAPY
     Dosage: 100,MG,DAILY
     Dates: start: 2007

REACTIONS (12)
  - Illusion [Unknown]
  - Bronchitis [Unknown]
  - Memory impairment [Unknown]
  - Loss of consciousness [Unknown]
  - Palpitations [Unknown]
  - Dizziness [Unknown]
  - Heart rate increased [Unknown]
  - Wheezing [Unknown]
  - Depression [Unknown]
  - Bronchospasm [Unknown]
  - Cough [Unknown]
  - Sneezing [Unknown]

NARRATIVE: CASE EVENT DATE: 201802
